FAERS Safety Report 5927507-X (Version None)
Quarter: 2008Q4

REPORT INFORMATION
  Report Type: 
  Country: None (occurrence: None)
  Receive Date: 20081021
  Receipt Date: 20081021
  Transmission Date: 20090506
  Serious: Yes (Hospitalization)
  Sender: FDA-Public Use
  Company Number: None

PATIENT
  Sex: Female
  Weight: 11.74 kg

DRUGS (3)
  1. CYCLOPHOSPHAMIDE [Suspect]
     Dosage: 700 MG
  2. G-CSF (FILGRASTIM, [Suspect]
     Dosage: 50 MCG
  3. TOPOTECAN [Suspect]
     Dosage: 2.9 MG

REACTIONS (15)
  - ABDOMINAL DISTENSION [None]
  - BLOOD CULTURE POSITIVE [None]
  - CATHETER SITE INFECTION [None]
  - CULTURE POSITIVE [None]
  - DISSEMINATED INTRAVASCULAR COAGULATION [None]
  - GENERAL PHYSICAL HEALTH DETERIORATION [None]
  - HEPATIC FUNCTION ABNORMAL [None]
  - LEUKOPENIA [None]
  - NEUTROPENIA [None]
  - PAIN [None]
  - PSEUDOMONAS INFECTION [None]
  - PYREXIA [None]
  - RESPIRATORY DISTRESS [None]
  - STAPHYLOCOCCAL INFECTION [None]
  - SURGICAL FAILURE [None]
